FAERS Safety Report 8025200-3 (Version None)
Quarter: 2012Q1

REPORT INFORMATION
  Report Type: 
  Country: None (occurrence: None)
  Receive Date: 20120105
  Receipt Date: 20111229
  Transmission Date: 20120608
  Serious: Yes (Hospitalization)
  Sender: FDA-Public Use
  Company Number: IT-GLAXOSMITHKLINE-B0770122A

PATIENT
  Sex: Female

DRUGS (6)
  1. PREDNISONE TAB [Suspect]
     Indication: MULTIPLE MYELOMA
     Dosage: 50MG PER DAY
     Route: 048
     Dates: start: 20110428, end: 20110501
  2. ZOMETA [Concomitant]
  3. OMEPRAZOLE [Concomitant]
  4. ALKERAN [Concomitant]
     Indication: MULTIPLE MYELOMA
     Dosage: 10MG PER DAY
     Route: 048
     Dates: start: 20110428, end: 20110501
  5. ASPIRIN [Concomitant]
  6. THALIDOMIDE [Suspect]
     Indication: MULTIPLE MYELOMA
     Dosage: 50MG PER DAY
     Route: 048
     Dates: start: 20110428, end: 20110516

REACTIONS (4)
  - ASTHENIA [None]
  - PULMONARY HYPERTENSION [None]
  - ATRIAL FIBRILLATION [None]
  - DYSPNOEA EXERTIONAL [None]
